FAERS Safety Report 24169149 (Version 1)
Quarter: 2024Q3

REPORT INFORMATION
  Report Type: Spontaneous
  Country: IT (occurrence: IT)
  Receive Date: 20240802
  Receipt Date: 20240802
  Transmission Date: 20241017
  Serious: Yes (Hospitalization, Other)
  Sender: SANDOZ
  Company Number: IT-ELI_LILLY_AND_COMPANY-IT202407011764

PATIENT
  Age: 77 Year

DRUGS (2)
  1. PEMETREXED [Suspect]
     Active Substance: PEMETREXED
     Indication: Pleural mesothelioma malignant
     Dosage: UNK UNK, CYCLICAL (4 CYCLES)
     Route: 065
     Dates: start: 20240415, end: 20240625
  2. CARBOPLATIN [Concomitant]
     Active Substance: CARBOPLATIN
     Indication: Product used for unknown indication
     Dosage: UNK UNK, CYCLICAL (4 CYCLES)
     Route: 065
     Dates: start: 20240415, end: 20240625

REACTIONS (4)
  - Presyncope [Unknown]
  - Urinary tract infection [Unknown]
  - Malignant neoplasm progression [Unknown]
  - Lymphadenopathy mediastinal [Unknown]

NARRATIVE: CASE EVENT DATE: 20240510
